FAERS Safety Report 25253090 (Version 1)
Quarter: 2025Q2

REPORT INFORMATION
  Report Type: Spontaneous
  Country: US (occurrence: US)
  Receive Date: 20250430
  Receipt Date: 20250430
  Transmission Date: 20250716
  Serious: Yes (Other)
  Sender: AMGEN
  Company Number: US-AMGEN-USASP2025079693

PATIENT
  Age: 71 Year
  Sex: Male

DRUGS (6)
  1. XGEVA [Suspect]
     Active Substance: DENOSUMAB
     Indication: Metastases to bone
     Route: 065
  2. PREDNISONE [Suspect]
     Active Substance: PREDNISONE
     Indication: Metastases to bone
     Dosage: 5 MILLIGRAM, BID
     Route: 065
  3. DOCETAXEL [Concomitant]
     Active Substance: DOCETAXEL
     Dosage: 75 MILLIGRAM/SQ. METER, Q3WK
  4. DAROLUTAMIDE [Concomitant]
     Active Substance: DAROLUTAMIDE
     Dosage: 600 MILLIGRAM, BID
  5. RELUGOLIX [Concomitant]
     Active Substance: RELUGOLIX
  6. ABIRATERONE [Concomitant]
     Active Substance: ABIRATERONE

REACTIONS (3)
  - Sepsis [Unknown]
  - Metastases to bone [Unknown]
  - Diarrhoea [Unknown]
